FAERS Safety Report 17407397 (Version 2)
Quarter: 2020Q1

REPORT INFORMATION
  Report Type: Report from Study
  Country: FR (occurrence: FR)
  Receive Date: 20200212
  Receipt Date: 20200305
  Transmission Date: 20200409
  Serious: Yes (Hospitalization)
  Sender: FDA-Public Use
  Company Number: FR-ROCHE-2542556

PATIENT
  Age: 52 Year
  Sex: Female

DRUGS (2)
  1. NEBIVOLOL. [Concomitant]
     Active Substance: NEBIVOLOL
     Route: 065
  2. ATEZOLIZUMAB. [Suspect]
     Active Substance: ATEZOLIZUMAB
     Indication: CERVIX CARCINOMA
     Dosage: CUMULATIVE DOSE OF ATEZOLIZUMAB (9600 MG) AND CYCLE OF OCCURRENCE (CYCLE 8) WERE UPDATED
     Route: 042
     Dates: start: 20190806, end: 20200113

REACTIONS (1)
  - Endometritis [Recovered/Resolved]

NARRATIVE: CASE EVENT DATE: 20200107
